FAERS Safety Report 15773785 (Version 2)
Quarter: 2019Q1

REPORT INFORMATION
  Report Type: Spontaneous
  Country: CZ (occurrence: CZ)
  Receive Date: 20181229
  Receipt Date: 20190122
  Transmission Date: 20190417
  Serious: Yes (Death, Hospitalization, Other)
  Sender: FDA-Public Use
  Company Number: CZ-AUROBINDO-AUR-APL-2018-063451

PATIENT
  Age: 80 Year
  Sex: Male
  Weight: 61 kg

DRUGS (7)
  1. PRADAXA [Interacting]
     Active Substance: DABIGATRAN ETEXILATE MESYLATE
     Indication: CEREBROVASCULAR ACCIDENT PROPHYLAXIS
     Dosage: 110 MILLIGRAM, ONCE A DAY
     Route: 048
  2. PRADAXA [Interacting]
     Active Substance: DABIGATRAN ETEXILATE MESYLATE
     Dosage: UNK
     Route: 065
  3. CLARITHROMYCIN FILM COATED TABLETS [Suspect]
     Active Substance: CLARITHROMYCIN
     Indication: PNEUMONIA
     Dosage: 1000 MILLIGRAM DAILY;
     Route: 048
  4. AMOXICILLIN W/CLAVULANIC ACID [Suspect]
     Active Substance: AMOXICILLIN\CLAVULANIC ACID
     Indication: PNEUMONIA
     Dosage: UNK
     Route: 048
  5. DABIGATRAN [Interacting]
     Active Substance: DABIGATRAN
     Indication: ATRIAL FIBRILLATION
     Dosage: 220 MILLIGRAM, ONCE A DAY (110 MG, BID)
     Route: 065
  6. PRADAXA [Interacting]
     Active Substance: DABIGATRAN ETEXILATE MESYLATE
     Indication: ATRIAL FIBRILLATION
     Dosage: 220 MILLIGRAM, ONCE A DAY
     Route: 048
  7. CLARITHROMYCIN FILM COATED TABLETS [Interacting]
     Active Substance: CLARITHROMYCIN
     Dosage: 500 MILLIGRAM, TWO TIMES A DAY
     Route: 048

REACTIONS (5)
  - Haemorrhage [Fatal]
  - Epistaxis [Fatal]
  - Gingival bleeding [Fatal]
  - Gastrointestinal haemorrhage [Fatal]
  - Drug interaction [Unknown]
